FAERS Safety Report 13871186 (Version 2)
Quarter: 2017Q3

REPORT INFORMATION
  Report Type: Spontaneous
  Country: US (occurrence: US)
  Receive Date: 20170816
  Receipt Date: 20170927
  Transmission Date: 20171127
  Serious: No
  Sender: FDA-Public Use
  Company Number: US-ASTRAZENECA-2017SE81294

PATIENT
  Sex: Female
  Weight: 56.7 kg

DRUGS (1)
  1. SYMBICORT [Suspect]
     Active Substance: BUDESONIDE\FORMOTEROL FUMARATE DIHYDRATE
     Indication: ASTHMA
     Dosage: 160/4.5MCG, 2 PUFFS TWO TIMES A DAY
     Route: 055

REACTIONS (5)
  - Throat tightness [Unknown]
  - Intentional device misuse [Unknown]
  - Intentional product misuse [Unknown]
  - Device malfunction [Unknown]
  - Feeling abnormal [Unknown]
